FAERS Safety Report 10151944 (Version 2)
Quarter: 2014Q2

REPORT INFORMATION
  Report Type: Report from Study
  Country: JP (occurrence: JP)
  Receive Date: 20140505
  Receipt Date: 20140516
  Transmission Date: 20141212
  Serious: Yes (Hospitalization)
  Sender: FDA-Public Use
  Company Number: JP-ROCHE-1392149

PATIENT
  Age: 66 Year
  Sex: Male
  Weight: 63.7 kg

DRUGS (6)
  1. TRASTUZUMAB EMTANSINE [Suspect]
     Indication: HER-2 POSITIVE GASTRIC CANCER
     Route: 042
     Dates: start: 20121105, end: 20131119
  2. TRASTUZUMAB EMTANSINE [Suspect]
     Dosage: MOST RECENT DOSE PRIOR TO DIABETES: 235MG ON 01/APR/2014.
     Route: 042
     Dates: start: 20131126
  3. HIRUDOID (JAPAN) [Concomitant]
     Indication: DRY SKIN
     Route: 065
     Dates: start: 20121127
  4. HIRUDOID (JAPAN) [Concomitant]
     Indication: RASH MACULO-PAPULAR
     Route: 065
     Dates: start: 20130501
  5. METHYCOBAL [Concomitant]
     Indication: PERIPHERAL SENSORY NEUROPATHY
     Route: 065
     Dates: start: 20140401
  6. MS REISHIPPU [Concomitant]
     Indication: PERIPHERAL SENSORY NEUROPATHY
     Route: 065
     Dates: start: 20140311

REACTIONS (1)
  - Diabetes mellitus [Recovering/Resolving]
